FAERS Safety Report 7435721-X (Version None)
Quarter: 2011Q2

REPORT INFORMATION
  Report Type: 
  Country: None (occurrence: None)
  Receive Date: 20110425
  Receipt Date: 20110413
  Transmission Date: 20111010
  Serious: Yes (Hospitalization)
  Sender: FDA-Public Use
  Company Number: US-ELI_LILLY_AND_COMPANY-US201006004317

PATIENT
  Sex: Male

DRUGS (12)
  1. PRAVASTATIN [Concomitant]
  2. PREDNISONE [Concomitant]
  3. OSCAL [Concomitant]
  4. BUMETANIDE [Concomitant]
  5. MULTI-VIT [Concomitant]
  6. ALBUTEROL [Concomitant]
  7. DOXYCYCLA [Concomitant]
  8. SPIRONOLACTONE [Concomitant]
  9. FORTEO [Suspect]
     Indication: OSTEOPOROSIS
     Dosage: 20 UG, DAILY (1/D)
     Route: 065
  10. TORSEMIDE [Concomitant]
  11. METOPROLOL [Concomitant]
  12. FORADIL [Concomitant]

REACTIONS (3)
  - OEDEMA PERIPHERAL [None]
  - CELLULITIS [None]
  - DIABETES MELLITUS [None]
